FAERS Safety Report 23257734 (Version 1)
Quarter: 2023Q4

REPORT INFORMATION
  Report Type: Spontaneous
  Country: US (occurrence: US)
  Receive Date: 20231204
  Receipt Date: 20231204
  Transmission Date: 20240110
  Serious: Yes (Other)
  Sender: FDA-Public Use
  Company Number: US-AMGEN-USASP2023211788

PATIENT
  Age: 73 Year
  Sex: Female

DRUGS (1)
  1. PROLIA [Suspect]
     Active Substance: DENOSUMAB
     Indication: Osteoporosis
     Dosage: UNK
     Route: 065

REACTIONS (12)
  - Pneumonia [Unknown]
  - Breast cancer [Unknown]
  - COVID-19 [Unknown]
  - Sinusitis [Unknown]
  - Influenza [Unknown]
  - Gingival disorder [Not Recovered/Not Resolved]
  - Tooth loss [Unknown]
  - Dental caries [Unknown]
  - Urinary tract infection [Unknown]
  - Alopecia [Unknown]
  - Eczema [Unknown]
  - Amnesia [Unknown]

NARRATIVE: CASE EVENT DATE: 20231001
